FAERS Safety Report 16197827 (Version 2)
Quarter: 2019Q2

REPORT INFORMATION
  Report Type: Not Available
  Country: US (occurrence: US)
  Receive Date: 20190415
  Receipt Date: 20190515
  Transmission Date: 20190711
  Serious: No
  Sender: FDA-Public Use
  Company Number: US-NEUROCRINE BIOSCIENCES INC.-2019NBI00876

PATIENT
  Sex: Female

DRUGS (6)
  1. INGREZZA [Suspect]
     Active Substance: VALBENAZINE
     Dosage: 40 MG IN THE MORNING AND 40 MG AT NIGHT
     Route: 048
     Dates: start: 20190320
  2. ABILIFY [Concomitant]
     Active Substance: ARIPIPRAZOLE
     Dates: start: 20190313
  3. LAMICTAL [Concomitant]
     Active Substance: LAMOTRIGINE
  4. INGREZZA [Suspect]
     Active Substance: VALBENAZINE
     Indication: TARDIVE DYSKINESIA
     Route: 048
     Dates: start: 201903, end: 20190311
  5. INGREZZA [Suspect]
     Active Substance: VALBENAZINE
     Route: 048
     Dates: start: 20190312, end: 20190319
  6. BUSPIRONE [Concomitant]
     Active Substance: BUSPIRONE HYDROCHLORIDE

REACTIONS (2)
  - Drug ineffective [None]
  - Intentional product use issue [Unknown]
